FAERS Safety Report 5535764-7 (Version None)
Quarter: 2007Q4

REPORT INFORMATION
  Report Type: 
  Country: None (occurrence: None)
  Receive Date: 20071203
  Receipt Date: 20071203
  Transmission Date: 20080405
  Serious: Yes (Hospitalization)
  Sender: FDA-Public Use
  Company Number: None

PATIENT
  Age: 49 Year
  Sex: Male
  Weight: 113 kg

DRUGS (1)
  1. OMALIZUMAB [Suspect]
     Indication: ASTHMA
     Dosage: 225MG OTHER SQ
     Route: 058
     Dates: start: 20070928, end: 20071001

REACTIONS (5)
  - DIZZINESS [None]
  - DYSPHAGIA [None]
  - DYSPNOEA [None]
  - ERYTHEMA [None]
  - THROAT TIGHTNESS [None]
